FAERS Safety Report 9440829 (Version 1)
Quarter: 2013Q3

REPORT INFORMATION
  Report Type: Report from Study
  Country: CA (occurrence: CA)
  Receive Date: 20130805
  Receipt Date: 20130805
  Transmission Date: 20140515
  Serious: Yes (Hospitalization)
  Sender: FDA-Public Use
  Company Number: CA-JNJFOC-20130718198

PATIENT
  Age: 56 Year
  Sex: Female
  Weight: 95.4 kg

DRUGS (6)
  1. STELARA [Suspect]
     Indication: PSORIASIS
     Route: 058
     Dates: start: 20130624
  2. INDAPAMIDE [Concomitant]
     Route: 048
  3. VENLAFAXINE [Concomitant]
     Route: 048
  4. CANDESARTAN [Concomitant]
     Route: 048
  5. ROSUVASTATIN [Concomitant]
     Route: 048
  6. ZOPICLONE [Concomitant]
     Route: 048

REACTIONS (1)
  - Diverticulitis [Unknown]
